FAERS Safety Report 6967728-0 (Version None)
Quarter: 2010Q3

REPORT INFORMATION
  Report Type: 
  Country: None (occurrence: None)
  Receive Date: 20100901
  Receipt Date: 20100816
  Transmission Date: 20110219
  Serious: Yes (Hospitalization)
  Sender: FDA-Public Use
  Company Number: DSA_43753_2010

PATIENT
  Age: 88 Year
  Sex: Male

DRUGS (13)
  1. ENALAPRIL MALEATE [Suspect]
     Indication: CARDIAC FAILURE
     Dosage: DF ORAL
     Route: 048
  2. , [Concomitant]
     Route: 048
  3. FLUINDIONE (FLUINDIONE) [Suspect]
     Indication: ATRIAL FIBRILLATION
     Dosage: 5MG QD ORAL
     Route: 048
     Dates: end: 20100713
  4. ACETAMINOPHEN [Concomitant]
  5. CALCIUM CARBONATE [Concomitant]
  6. FERROUS SULFATE TAB [Concomitant]
  7. FUROSEMIDE [Concomitant]
  8. POTASSIUM CHLORIDE [Concomitant]
  9. MEPROBAMATE [Concomitant]
  10. NICORANDIL [Concomitant]
  11. OMEPRAZOLE [Concomitant]
  12. PROPRANOLOL HYDROCHLORIDE [Concomitant]
  13. SAW PLAMETTO [Concomitant]

REACTIONS (11)
  - ABDOMINAL PAIN [None]
  - BLOOD CREATININE INCREASED [None]
  - COLON ADENOMA [None]
  - CREATININE RENAL CLEARANCE DECREASED [None]
  - DIARRHOEA [None]
  - HAEMOGLOBIN DECREASED [None]
  - INCOHERENT [None]
  - INTERNATIONAL NORMALISED RATIO INCREASED [None]
  - INTESTINAL POLYP [None]
  - LOGORRHOEA [None]
  - RECTAL HAEMORRHAGE [None]
